FAERS Safety Report 6496498-8 (Version None)
Quarter: 2009Q4

REPORT INFORMATION
  Report Type: 
  Country: None (occurrence: None)
  Receive Date: 20091214
  Receipt Date: 20090408
  Transmission Date: 20100525
  Serious: Yes (Death, Life-Threatening, Hospitalization, Disabling)
  Sender: FDA-Public Use
  Company Number: ES-SANOFI-AVENTIS-D01200603645

PATIENT
  Age: 85 Year
  Sex: Female
  Weight: 64 kg

DRUGS (4)
  1. CLOPIDOGREL BISULFATE [Suspect]
     Indication: ATRIAL FIBRILLATION
     Dosage: UNIT DOSE: 75 MG
     Route: 048
     Dates: start: 20040424
  2. BLINDED THERAPY [Concomitant]
     Indication: ATRIAL FIBRILLATION
     Dosage: DOSE TEXT: 150 MG/DAY FOR 2 WEEKS FOLLOWING BY 300 MG/DAYUNIT DOSE: 150 MG
     Route: 048
     Dates: start: 20040424
  3. ASPIRIN [Concomitant]
     Indication: ATRIAL FIBRILLATION
     Route: 048
     Dates: start: 20040424
  4. HEPARIN-FRACTION [Concomitant]

REACTIONS (2)
  - FEMUR FRACTURE [None]
  - GASTROINTESTINAL HAEMORRHAGE [None]
